FAERS Safety Report 5509718-0 (Version None)
Quarter: 2007Q4

REPORT INFORMATION
  Report Type: 
  Country: None (occurrence: None)
  Receive Date: 20071108
  Receipt Date: 20071102
  Transmission Date: 20080405
  Serious: Yes (Life-Threatening)
  Sender: FDA-Public Use
  Company Number: DE-ELI_LILLY_AND_COMPANY-DE200711000386

PATIENT
  Age: 58 Year
  Sex: Female

DRUGS (2)
  1. ZYPREXA [Suspect]
     Indication: PSYCHOTIC DISORDER
     Dosage: 2.5 MG, DAILY (1/D)
     Route: 048
  2. EUTIROX [Concomitant]
     Indication: THYROID FUNCTION TEST ABNORMAL
     Dosage: UNK, UNKNOWN
     Route: 048
     Dates: start: 20070601

REACTIONS (4)
  - BLOOD PRESSURE DECREASED [None]
  - CIRCULATORY COLLAPSE [None]
  - SHOCK [None]
  - TACHYCARDIA [None]
